FAERS Safety Report 10467195 (Version 7)
Quarter: 2015Q4

REPORT INFORMATION
  Report Type: Report from Study
  Country: TW (occurrence: TW)
  Receive Date: 20140922
  Receipt Date: 20151020
  Transmission Date: 20160304
  Serious: Yes (Death, Hospitalization)
  Sender: FDA-Public Use
  Company Number: TW-MERCK-1407TWN006223

PATIENT
  Age: 66 Year
  Sex: Male
  Weight: 53.2 kg

DRUGS (25)
  1. MORPHINE SULFATE. [Concomitant]
     Active Substance: MORPHINE SULFATE
     Dosage: TOTAL DAILY DOSE 30 ML, FREQUANCY OTHER
     Route: 048
     Dates: start: 20140620, end: 20140711
  2. LACTULOSE. [Concomitant]
     Active Substance: LACTULOSE
     Dosage: 20 ML, ONCE
     Route: 048
     Dates: start: 20140707, end: 20140708
  3. PEMBROLIZUMAB. [Suspect]
     Active Substance: PEMBROLIZUMAB
     Dosage: 10 MG/KG, Q2W
     Route: 042
     Dates: start: 20140620, end: 20140620
  4. MAGNESIUM OXIDE. [Concomitant]
     Active Substance: MAGNESIUM OXIDE
     Indication: CONSTIPATION PROPHYLAXIS
     Dosage: 250 MG, TID
     Route: 048
     Dates: start: 20140523, end: 20140627
  5. LACTULOSE. [Concomitant]
     Active Substance: LACTULOSE
     Indication: CONSTIPATION
     Dosage: 30 ML, QD
     Route: 002
     Dates: start: 20140605, end: 20140707
  6. MORPHINE SULFATE. [Concomitant]
     Active Substance: MORPHINE SULFATE
     Indication: TUMOUR PAIN
     Dosage: TOTAL DAILY DOSE: 30 ML, PRN
     Route: 048
     Dates: start: 20140523, end: 20140722
  7. ALPRALINE [Concomitant]
     Active Substance: ALPRAZOLAM
     Indication: ANXIETY
     Dosage: 0.25 MG, BID
     Route: 048
     Dates: start: 20140523
  8. LYRICA [Concomitant]
     Active Substance: PREGABALIN
     Indication: TUMOUR PAIN
     Dosage: 75 MG, BID
     Route: 048
     Dates: start: 20140523
  9. IMOLEX [Concomitant]
     Indication: FAECAL INCONTINENCE
  10. DORISON (DEXAMETHASONE) [Concomitant]
     Dosage: 4 MG, BID
     Route: 002
     Dates: start: 20140704, end: 20140711
  11. MORPHINE SULFATE. [Concomitant]
     Active Substance: MORPHINE SULFATE
     Indication: ADVERSE EVENT
     Dosage: TOTAL DAILY DOSE 30 ML, FREQUANCY OTHER
     Route: 048
     Dates: start: 20140620, end: 20140711
  12. DORISON (DEXAMETHASONE) [Concomitant]
     Dosage: 4 MG, QD
     Route: 002
     Dates: start: 20140710, end: 20140722
  13. TAITA NO. 5 [Concomitant]
     Indication: PROPHYLAXIS AGAINST DEHYDRATION
     Dosage: 800 ML, QD
     Route: 042
     Dates: start: 20140704, end: 20140704
  14. ULTRACET [Concomitant]
     Active Substance: ACETAMINOPHEN\TRAMADOL HYDROCHLORIDE
     Indication: TUMOUR PAIN
     Dosage: 1 TABLET, TID
     Route: 048
     Dates: start: 20140605, end: 20140711
  15. ARTELAC [Concomitant]
     Active Substance: HYPROMELLOSES
     Indication: PROPHYLAXIS
     Dosage: 1 GTT, QID
     Route: 061
     Dates: start: 20140620, end: 20140718
  16. PEMBROLIZUMAB. [Suspect]
     Active Substance: PEMBROLIZUMAB
     Dosage: 10 MG/KG, Q2W
     Route: 042
     Dates: start: 20140715, end: 20140715
  17. PEMBROLIZUMAB. [Suspect]
     Active Substance: PEMBROLIZUMAB
     Indication: NEOPLASM MALIGNANT
     Dosage: 10 MG/KG, Q2W
     Route: 042
     Dates: start: 20140523, end: 20140606
  18. LASIX [Concomitant]
     Active Substance: FUROSEMIDE
     Indication: ADVERSE EVENT
     Dosage: 40 MG, QD
     Route: 048
     Dates: start: 20140530, end: 20140627
  19. AUGMENTIN [Concomitant]
     Active Substance: AMOXICILLIN\CLAVULANATE POTASSIUM
     Indication: INFECTION PROPHYLAXIS
     Dosage: 1 G, BID
     Route: 002
     Dates: start: 20140617, end: 20140623
  20. DORISON (DEXAMETHASONE) [Concomitant]
     Indication: ADVERSE EVENT
     Dosage: 4 MG, TID
     Route: 048
     Dates: start: 20140620, end: 20140703
  21. AUGMENTIN [Concomitant]
     Active Substance: AMOXICILLIN\CLAVULANATE POTASSIUM
     Indication: ADVERSE EVENT
     Dosage: 1000 MG, BID
     Route: 048
     Dates: start: 20140617, end: 20140624
  22. MUCOSOLVAN [Concomitant]
     Active Substance: AMBROXOL HYDROCHLORIDE
     Indication: COUGH
     Dosage: 30 MG, TID
     Route: 048
     Dates: start: 20140523, end: 20140722
  23. LACTULOSE. [Concomitant]
     Active Substance: LACTULOSE
     Indication: CONSTIPATION
     Dosage: 20 ML, TID
     Route: 048
     Dates: start: 20140606, end: 20140627
  24. IMOLEX [Concomitant]
     Indication: DIARRHOEA
     Dosage: 2 MG, BID
     Route: 048
     Dates: start: 20140627, end: 20140711
  25. TAITA NO. 5 [Concomitant]
     Indication: PROPHYLAXIS AGAINST DEHYDRATION
     Dosage: 800 ML, QD
     Route: 042
     Dates: start: 20140627, end: 20140627

REACTIONS (2)
  - Constipation [Recovered/Resolved]
  - Interstitial lung disease [Fatal]

NARRATIVE: CASE EVENT DATE: 20140706
